APPROVED DRUG PRODUCT: PAROXETINE HYDROCHLORIDE
Active Ingredient: PAROXETINE HYDROCHLORIDE
Strength: EQ 10MG BASE/5ML
Dosage Form/Route: SUSPENSION;ORAL
Application: A077395 | Product #001
Applicant: APOTEX INC
Approved: Dec 5, 2006 | RLD: No | RS: No | Type: DISCN